FAERS Safety Report 9536618 (Version 5)
Quarter: 2014Q1

REPORT INFORMATION
  Report Type: Report from Study
  Country: US (occurrence: US)
  Receive Date: 20130919
  Receipt Date: 20140228
  Transmission Date: 20141002
  Serious: Yes (Hospitalization)
  Sender: FDA-Public Use
  Company Number: US-ROCHE-1276333

PATIENT
  Age: 71 Year
  Sex: Male
  Weight: 88.6 kg

DRUGS (14)
  1. TOCILIZUMAB [Suspect]
     Indication: RHEUMATOID ARTHRITIS
     Dosage: LAST DOSE PRIOR TO SAE: 8 MG/KG ON 30/JUL/2013
     Route: 042
     Dates: start: 20130115
  2. METHOTREXATE [Suspect]
     Indication: RHEUMATOID ARTHRITIS
     Route: 048
     Dates: start: 201204
  3. CARVEDILOL [Concomitant]
     Dosage: EVERY DAY
     Route: 048
     Dates: start: 20130214
  4. METFORMIN [Concomitant]
     Indication: TYPE 2 DIABETES MELLITUS
     Route: 048
     Dates: start: 1988
  5. NAPROXEN SODIUM [Concomitant]
     Indication: RHEUMATOID ARTHRITIS
     Dosage: EVERY DAY
     Route: 048
     Dates: start: 201209
  6. FOLIC ACID [Concomitant]
     Indication: RHEUMATOID ARTHRITIS
     Dosage: EVERY DAY
     Route: 048
     Dates: start: 20121115
  7. SIMVASTATIN [Concomitant]
     Indication: HYPERLIPIDAEMIA
     Dosage: EVERY DAY
     Route: 048
     Dates: start: 1998
  8. ASPIRIN [Concomitant]
     Dosage: EVERY DAY
     Route: 048
     Dates: start: 1998
  9. VITAMIN C [Concomitant]
     Dosage: EVERY DAY
     Route: 048
     Dates: start: 2003
  10. FISH OIL [Concomitant]
     Dosage: EVERY DAY
     Route: 048
     Dates: start: 2003
  11. GLIPIZIDE [Concomitant]
     Indication: TYPE 2 DIABETES MELLITUS
     Dosage: EVERY DAY
     Route: 048
     Dates: start: 1990, end: 20130214
  12. GLIPIZIDE [Concomitant]
     Dosage: EVERY DAY
     Route: 048
     Dates: start: 20130214
  13. LOSARTAN/HCTZ [Concomitant]
     Indication: HYPERTENSION
     Dosage: EVERY DAY
     Route: 048
     Dates: start: 2003
  14. PRILOSEC [Concomitant]
     Dosage: EVERY DAY
     Route: 048

REACTIONS (1)
  - Pancreatitis [Not Recovered/Not Resolved]
